FAERS Safety Report 9422139 (Version 3)
Quarter: 2013Q4

REPORT INFORMATION
  Report Type: Spontaneous
  Country: AU (occurrence: AU)
  Receive Date: 20130726
  Receipt Date: 20131107
  Transmission Date: 20140711
  Serious: Yes (Hospitalization, Other)
  Sender: FDA-Public Use
  Company Number: AU-ROCHE-1253232

PATIENT
  Age: 45 Year
  Sex: Female
  Weight: 63 kg

DRUGS (3)
  1. XOLAIR [Suspect]
     Indication: ASTHMA
     Route: 065
     Dates: start: 20130214
  2. XOLAIR [Suspect]
     Route: 065
     Dates: start: 20130823
  3. XOLAIR [Suspect]
     Route: 065

REACTIONS (10)
  - Neuropathy peripheral [Recovering/Resolving]
  - Arthritis [Not Recovered/Not Resolved]
  - Joint swelling [Recovering/Resolving]
  - Cardiomyopathy [Recovering/Resolving]
  - Vasculitis [Recovering/Resolving]
  - Pericarditis [Unknown]
  - Blood immunoglobulin E increased [Unknown]
  - Ejection fraction decreased [Unknown]
  - Lung infiltration [Unknown]
  - Paraesthesia [Not Recovered/Not Resolved]
